FAERS Safety Report 8030248-9 (Version None)
Quarter: 2012Q1

REPORT INFORMATION
  Report Type: 
  Country: None (occurrence: None)
  Receive Date: 20120109
  Receipt Date: 20120104
  Transmission Date: 20120608
  Serious: Yes (Hospitalization, Other)
  Sender: FDA-Public Use
  Company Number: PHHY2012IL001019

PATIENT
  Age: 55 Year
  Sex: Male

DRUGS (1)
  1. CERTICAN [Suspect]
     Indication: HEART TRANSPLANT
     Dosage: 1 MG, BID
     Route: 048

REACTIONS (3)
  - FATIGUE [None]
  - MYOCARDIAL INFARCTION [None]
  - CARDIAC FAILURE [None]
